FAERS Safety Report 7619537-7 (Version None)
Quarter: 2011Q3

REPORT INFORMATION
  Report Type: 
  Country: None (occurrence: None)
  Receive Date: 20110719
  Receipt Date: 20110707
  Transmission Date: 20111222
  Serious: Yes (Hospitalization)
  Sender: FDA-Public Use
  Company Number: CA-JNJFOC-20110703162

PATIENT
  Sex: Female

DRUGS (1)
  1. REMICADE [Suspect]
     Indication: PRODUCT USED FOR UNKNOWN INDICATION
     Route: 042
     Dates: start: 20110531

REACTIONS (7)
  - PAIN IN EXTREMITY [None]
  - LOCALISED INFECTION [None]
  - ARTHRALGIA [None]
  - BLOOD POTASSIUM DECREASED [None]
  - PYREXIA [None]
  - OEDEMA PERIPHERAL [None]
  - CHILLS [None]
